FAERS Safety Report 17235463 (Version 1)
Quarter: 2020Q1

REPORT INFORMATION
  Report Type: Spontaneous
  Country: FR (occurrence: FR)
  Receive Date: 20200106
  Receipt Date: 20200106
  Transmission Date: 20200409
  Serious: Yes (Life-Threatening, Hospitalization)
  Sender: FDA-Public Use
  Company Number: FR-ACCORD-168687

PATIENT
  Age: 60 Year
  Sex: Female
  Weight: 140 kg

DRUGS (6)
  1. CIRCADIN [Suspect]
     Active Substance: MELATONIN
     Indication: POISONING DELIBERATE
     Dosage: STRENGTH-2 MG
     Route: 048
     Dates: start: 20191204, end: 20191204
  2. QUETIAPINE. [Suspect]
     Active Substance: QUETIAPINE
     Indication: POISONING DELIBERATE
     Route: 048
     Dates: start: 20191204, end: 20191204
  3. LEVOTHYROX [Concomitant]
     Active Substance: LEVOTHYROXINE
  4. TERALITHE [Suspect]
     Active Substance: LITHIUM CARBONATE
     Indication: POISONING DELIBERATE
     Dosage: STRENGTH-400 MG,
     Route: 048
     Dates: start: 20191204, end: 20191204
  5. ZOPICLONE [Suspect]
     Active Substance: ZOPICLONE
     Indication: POISONING DELIBERATE
     Route: 048
     Dates: start: 20191204, end: 20191204
  6. TRANXENE [Concomitant]
     Active Substance: CLORAZEPATE DIPOTASSIUM

REACTIONS (4)
  - Coma [Recovered/Resolved]
  - Antipsychotic drug level increased [Recovered/Resolved]
  - Electrocardiogram change [Recovered/Resolved]
  - Acidosis [Recovered/Resolved]

NARRATIVE: CASE EVENT DATE: 20191204
